FAERS Safety Report 24302418 (Version 3)
Quarter: 2025Q3

REPORT INFORMATION
  Report Type: Report from Study
  Country: JP (occurrence: JP)
  Receive Date: 20240910
  Receipt Date: 20250810
  Transmission Date: 20251020
  Serious: Yes (Hospitalization, Disabling, Other)
  Sender: ALEXION PHARMACEUTICALS
  Company Number: 2023A118833

PATIENT
  Age: 65 Year
  Sex: Male
  Weight: 57 kg

DRUGS (19)
  1. DURVALUMAB [Suspect]
     Active Substance: DURVALUMAB
     Indication: Hepatocellular carcinoma
     Dosage: 1500 MILLIGRAM, Q4W
     Dates: start: 20230417, end: 20230417
  2. TREMELIMUMAB [Suspect]
     Active Substance: TREMELIMUMAB
     Indication: Hepatocellular carcinoma
     Dates: start: 20240417, end: 20240417
  3. ASPIRIN [Concomitant]
     Active Substance: ASPIRIN
  4. ASPIRIN [Concomitant]
     Active Substance: ASPIRIN
  5. LANSOPRAZOLE [Concomitant]
     Active Substance: LANSOPRAZOLE
  6. LANSOPRAZOLE [Concomitant]
     Active Substance: LANSOPRAZOLE
  7. OLMESARTAN [Concomitant]
     Active Substance: OLMESARTAN
  8. OLMESARTAN [Concomitant]
     Active Substance: OLMESARTAN
  9. NIFEDIPINE [Concomitant]
     Active Substance: NIFEDIPINE
  10. NIFEDIPINE [Concomitant]
     Active Substance: NIFEDIPINE
  11. ETIZOLAM [Concomitant]
     Active Substance: ETIZOLAM
  12. ETIZOLAM [Concomitant]
     Active Substance: ETIZOLAM
  13. ZOPICLONE [Concomitant]
     Active Substance: ZOPICLONE
  14. ZOPICLONE [Concomitant]
     Active Substance: ZOPICLONE
  15. SENNOSIDES [Concomitant]
     Active Substance: SENNOSIDES
  16. SENNOSIDES [Concomitant]
     Active Substance: SENNOSIDES
  17. WARFARIN [Concomitant]
     Active Substance: WARFARIN
     Route: 065
  18. ESOMEPRAZOLE [Concomitant]
     Active Substance: ESOMEPRAZOLE
  19. URSODIOL [Concomitant]
     Active Substance: URSODIOL

REACTIONS (5)
  - Immune-mediated enterocolitis [Recovering/Resolving]
  - Immune-mediated pancreatitis [Recovered/Resolved]
  - Rash [Recovering/Resolving]
  - Necrotising retinitis [Recovered/Resolved with Sequelae]
  - Endophthalmitis [Recovered/Resolved with Sequelae]

NARRATIVE: CASE EVENT DATE: 20230428
